FAERS Safety Report 17940957 (Version 1)
Quarter: 2020Q2

REPORT INFORMATION
  Report Type: Spontaneous
  Country: US (occurrence: US)
  Receive Date: 20200625
  Receipt Date: 20200625
  Transmission Date: 20200714
  Serious: No
  Sender: FDA-Public Use
  Company Number: US-SA-2020SA153043

PATIENT

DRUGS (1)
  1. DUPIXENT [Suspect]
     Active Substance: DUPILUMAB
     Indication: DERMATITIS ATOPIC
     Dosage: 300 MG, QOW
     Route: 058
     Dates: start: 2019

REACTIONS (5)
  - Rash pruritic [Recovering/Resolving]
  - Skin haemorrhage [Recovering/Resolving]
  - Lymphadenopathy [Unknown]
  - Skin fissures [Recovering/Resolving]
  - Injection site pruritus [Unknown]
